FAERS Safety Report 8978765 (Version 4)
Quarter: 2013Q1

REPORT INFORMATION
  Report Type: Report from Study
  Country: DE (occurrence: DE)
  Receive Date: 20121220
  Receipt Date: 20130219
  Transmission Date: 20140127
  Serious: Yes (Death, Hospitalization, Other)
  Sender: FDA-Public Use
  Company Number: DE-OTSUKA-EU-2011-10219

PATIENT
  Sex: Male
  Weight: 43 kg

DRUGS (25)
  1. SAMSCA [Suspect]
     Indication: INAPPROPRIATE ANTIDIURETIC HORMONE SECRETION
     Dosage: 7.5 MG MILLIGRAM(S), DAILY DOSE
     Route: 048
     Dates: start: 20100723, end: 20100726
  2. SAMSCA [Suspect]
     Dosage: 15 MG MILLIGRAM(S), DAILY DOSE
     Route: 048
     Dates: start: 20100727, end: 20100730
  3. SAMSCA [Suspect]
     Dosage: 7.5 MG MILLIGRAM(S), QOD
     Route: 048
     Dates: start: 20100731, end: 20100809
  4. SAMSCA [Suspect]
     Dosage: 15 MG MILLIGRAM(S), QOD
     Route: 048
     Dates: start: 20100731, end: 20100809
  5. SAMSCA [Suspect]
     Dosage: 15 MG MILLIGRAM(S), DAILY DOSE
     Route: 048
     Dates: start: 20100811, end: 20100907
  6. SAMSCA [Suspect]
     Dosage: 15 MG MILLIGRAM(S), QOD
     Route: 048
     Dates: start: 20100908, end: 20110605
  7. SAMSCA [Suspect]
     Dosage: 7.5 MG MILLIGRAM(S), UNK
     Route: 048
     Dates: start: 20110606, end: 20120207
  8. SAMSCA [Suspect]
     Dosage: 7.5 MG MILLIGRAM(S), UNKNOWN
     Route: 048
     Dates: start: 20120208, end: 20120216
  9. BISOPROLOL [Concomitant]
     Indication: ARRHYTHMIA
     Dosage: 1.25 MG MILLIGRAM(S), DAILY DOSE
     Route: 048
  10. BISOPROLOL [Concomitant]
     Indication: ATRIAL FIBRILLATION
  11. BISOPROLOL [Concomitant]
     Indication: CARDIAC FAILURE CONGESTIVE
  12. DIGITOXIN [Concomitant]
     Indication: ARRHYTHMIA
     Dosage: 0.07 MG MILLIGRAM(S), DAILY DOSE
     Route: 048
     Dates: start: 20100928
  13. DIGITOXIN [Concomitant]
     Indication: ATRIAL FIBRILLATION
  14. DIGITOXIN [Concomitant]
     Indication: CARDIAC FAILURE CONGESTIVE
  15. KREON [Concomitant]
     Indication: PANCREATIC INSUFFICIENCY
     Dosage: 25000 IU, DAILY DOSE
     Route: 048
     Dates: end: 20101104
  16. KREON [Concomitant]
     Dosage: 75000 IU, DAILY DOSE
     Route: 048
     Dates: start: 20101105
  17. PHENPROCOUMON [Concomitant]
     Indication: ARRHYTHMIA
     Dosage: 1 DF DOSAGE FORM, DAILY DOSE
     Route: 048
     Dates: start: 2010
  18. PHENPROCOUMON [Concomitant]
     Indication: ATRIAL FIBRILLATION
  19. PREDNISOLONE [Concomitant]
     Indication: CHRONIC OBSTRUCTIVE PULMONARY DISEASE
     Dosage: 10 MG MILLIGRAM(S), DAILY DOSE
     Route: 048
  20. TROSPIUM CHLORIDE [Concomitant]
     Dosage: 15 MG MILLIGRAM(S), DAILY DOSE
     Route: 048
     Dates: end: 201009
  21. COLECALCIFEROL [Concomitant]
     Indication: OSTEOPOROSIS
     Dosage: 1000 IU, DAILY DOSE
     Route: 048
  22. ROCEPHIN [Concomitant]
     Indication: PNEUMONIA
     Dosage: 2 G GRAM(S), DAILY DOSE
     Route: 042
     Dates: start: 20100811, end: 20101114
  23. ROCEPHIN [Concomitant]
     Indication: PYREXIA
  24. TAVOR [Concomitant]
     Indication: INSOMNIA
     Dosage: 1 MG MILLIGRAM(S), DAILY DOSE
     Route: 048
     Dates: start: 20101006, end: 20101006
  25. SALINE [Concomitant]
     Dosage: 1 MEQ/L, UNKNOWN
     Route: 065
     Dates: start: 20100724

REACTIONS (7)
  - Cerebral infarction [Recovered/Resolved with Sequelae]
  - Death [Fatal]
  - Hypokalaemia [Recovered/Resolved]
  - Pleural effusion [Recovered/Resolved]
  - Pneumothorax traumatic [Not Recovered/Not Resolved]
  - Wrong technique in drug usage process [Unknown]
  - Incorrect drug administration rate [Unknown]
